FAERS Safety Report 5474313-9 (Version None)
Quarter: 2007Q4

REPORT INFORMATION
  Report Type: 
  Country: None (occurrence: None)
  Receive Date: 20071002
  Receipt Date: 20070724
  Transmission Date: 20080405
  Serious: Yes (Hospitalization)
  Sender: FDA-Public Use
  Company Number: US-ASTRAZENECA-2007UW17910

PATIENT
  Age: 86 Year
  Sex: Female
  Weight: 74.8 kg

DRUGS (12)
  1. ARIMIDEX [Suspect]
     Indication: BREAST CANCER
     Route: 048
     Dates: start: 20061201
  2. METFORMIN HCL [Concomitant]
     Indication: DIABETES MELLITUS
     Route: 048
  3. JANUVIA [Concomitant]
  4. THYROID TAB [Concomitant]
  5. DIGOXIN [Concomitant]
  6. WARFARIN SODIUM [Concomitant]
     Route: 048
  7. ATENOLOL [Concomitant]
     Route: 048
  8. TIMOLOL MALEATE [Concomitant]
  9. STARLIX [Concomitant]
  10. CHILDREN'S ASPIRIN [Concomitant]
  11. VITAMIN B-12 [Concomitant]
  12. THYROID TAB [Concomitant]

REACTIONS (3)
  - DIZZINESS [None]
  - HEADACHE [None]
  - TRANSIENT ISCHAEMIC ATTACK [None]
